FAERS Safety Report 9973621 (Version 1)
Quarter: 2014Q1

REPORT INFORMATION
  Report Type: Spontaneous
  Country: US (occurrence: US)
  Receive Date: 20140306
  Receipt Date: 20140306
  Transmission Date: 20141002
  Serious: No
  Sender: FDA-Public Use
  Company Number: US-BAYER-2014-034980

PATIENT
  Sex: Female

DRUGS (1)
  1. ALEVE TABLET [Suspect]
     Indication: PAIN
     Dosage: 2 DF IN MORNING AND 1 DF AT NIGHT FOR MORE THAN 10 DAYS
     Route: 048

REACTIONS (2)
  - Faeces discoloured [None]
  - Incorrect drug administration duration [None]
